FAERS Safety Report 16676337 (Version 2)
Quarter: 2020Q1

REPORT INFORMATION
  Report Type: Spontaneous
  Country: DE (occurrence: DE)
  Receive Date: 20190807
  Receipt Date: 20200213
  Transmission Date: 20200409
  Serious: Yes (Hospitalization, Other)
  Sender: FDA-Public Use
  Company Number: DE-PFIZER INC-2019337668

PATIENT
  Age: 21 Year
  Sex: Male
  Weight: 110 kg

DRUGS (10)
  1. ZESSLY [Suspect]
     Active Substance: INFLIXIMAB
     Dosage: UNK
     Route: 065
  2. FERROSANOL [Concomitant]
     Active Substance: FERROUS GLUCONATE
     Dosage: UNK
     Dates: start: 20190727
  3. COTRIM [Concomitant]
     Active Substance: SULFAMETHOXAZOLE\TRIMETHOPRIM
     Dosage: UNK
     Dates: start: 20190731
  4. ZESSLY [Suspect]
     Active Substance: INFLIXIMAB
     Dosage: 575 MG, UNK
     Route: 065
     Dates: start: 20190430
  5. AZATHIOPRINE. [Suspect]
     Active Substance: AZATHIOPRINE
     Indication: COLITIS ULCERATIVE
     Dosage: 100 MG, DAILY
     Route: 065
     Dates: start: 20181115
  6. ZESSLY [Suspect]
     Active Substance: INFLIXIMAB
     Dosage: 565 MG, UNK
     Route: 065
     Dates: start: 20190402
  7. PREDNISOLONE. [Suspect]
     Active Substance: PREDNISOLONE
     Indication: COLITIS ULCERATIVE
     Dosage: 60 MG, DAILY
     Route: 065
     Dates: start: 20190727
  8. ZESSLY [Suspect]
     Active Substance: INFLIXIMAB
     Dosage: 575 MG, UNK
     Route: 065
     Dates: start: 20190625
  9. ZESSLY [Suspect]
     Active Substance: INFLIXIMAB
     Indication: COLITIS ULCERATIVE
     Dosage: 550 MG, UNK
     Route: 065
     Dates: start: 20190319
  10. ZESSLY [Suspect]
     Active Substance: INFLIXIMAB
     Dosage: 560 MG, UNK
     Route: 065
     Dates: start: 20190724

REACTIONS (2)
  - Colitis ulcerative [Recovered/Resolved]
  - Diarrhoea haemorrhagic [Recovered/Resolved]

NARRATIVE: CASE EVENT DATE: 20190727
